FAERS Safety Report 7621587-1 (Version None)
Quarter: 2011Q3

REPORT INFORMATION
  Report Type: 
  Country: None (occurrence: None)
  Receive Date: 20110719
  Receipt Date: 20110629
  Transmission Date: 20111222
  Serious: Yes (Hospitalization)
  Sender: FDA-Public Use
  Company Number: FR-BAYER-2011-056723

PATIENT
  Age: 84 Year
  Sex: Male

DRUGS (17)
  1. PERINDOPRIL ERBUMINE [Concomitant]
  2. PIPERACILLIN [Suspect]
     Indication: NEUROPATHIC ULCER
     Dosage: 4 G, TID
     Route: 048
     Dates: start: 20110515
  3. LYRICA [Concomitant]
  4. INSULIN GLULISINE [Concomitant]
  5. ASPIRIN [Concomitant]
  6. LANTUS [Concomitant]
  7. CIPROFLOXACIN [Suspect]
     Indication: NEUROPATHIC ULCER
     Dosage: 750 MG, BID
     Route: 048
     Dates: start: 20110515
  8. TRAMADOL HCL [Suspect]
     Indication: NEUROPATHIC ULCER
     Dosage: DAILY DOSE 100 MG
     Route: 048
     Dates: start: 20110519, end: 20110601
  9. BACTRIM DS [Suspect]
     Indication: NEUROPATHIC ULCER
     Dosage: 1 DF, BID
     Route: 048
     Dates: start: 20110515
  10. ACETAMINOPHEN [Concomitant]
  11. LOVENOX [Concomitant]
  12. CIPROFLOXACIN [Suspect]
     Indication: OSTEITIS
  13. PIPERACILLIN [Suspect]
     Indication: OSTEITIS
  14. BACTRIM DS [Suspect]
     Indication: OSTEITIS
  15. TRAMADOL HCL [Suspect]
     Indication: OSTEITIS
     Dosage: DAILY DOSE 150 MG
     Dates: start: 20110602
  16. LASIX [Concomitant]
  17. BISOPROLOL FUMARATE [Concomitant]

REACTIONS (1)
  - SKIN EXFOLIATION [None]
